FAERS Safety Report 24351469 (Version 1)
Quarter: 2024Q3

REPORT INFORMATION
  Report Type: Report from Study
  Country: IT (occurrence: IT)
  Receive Date: 20240923
  Receipt Date: 20240923
  Transmission Date: 20241016
  Serious: No
  Sender: ROCHE
  Company Number: IT-ROCHE-2056089

PATIENT
  Age: 40 Year
  Sex: Female
  Weight: 65.0 kg

DRUGS (12)
  1. HERCEPTIN [Suspect]
     Active Substance: TRASTUZUMAB
     Indication: HER2 positive breast cancer
     Dosage: MOST RECENT DOSE PRIOR TO THE EVENT: 09/MAY/2017
     Route: 042
     Dates: start: 20170418, end: 20170418
  2. PERJETA [Suspect]
     Active Substance: PERTUZUMAB
     Indication: HER2 positive breast cancer
     Dosage: MOST RECENT DOSE PRIOR TO THE EVENT: 09/MAY/2017
     Route: 042
     Dates: start: 20170418, end: 20170418
  3. TAXOTERE [Suspect]
     Active Substance: DOCETAXEL
     Indication: HER2 positive breast cancer
     Dosage: MOST RECENT DOSE PRIOR TO THE EVENT: 09/MAY/2017
     Route: 042
     Dates: start: 20170418, end: 20170418
  4. PREDNISONE [Concomitant]
     Active Substance: PREDNISONE
     Dosage: ONGOING = NOT CHECKED
     Dates: start: 20170717, end: 20170925
  5. DEXAMETHASONE [Concomitant]
     Active Substance: DEXAMETHASONE
     Dosage: ONGOING = NOT CHECKED
     Dates: start: 20170718, end: 20170718
  6. CHLORPHENIRAMINE MALEATE [Concomitant]
     Active Substance: CHLORPHENIRAMINE MALEATE
     Dosage: ONGOING = CHECKED
     Dates: start: 20170718
  7. LEVOSULPIRIDE [Concomitant]
     Active Substance: LEVOSULPIRIDE
     Dosage: ONGOING = NOT CHECKED
     Dates: start: 20170718, end: 20170928
  8. ZOMETA [Concomitant]
     Active Substance: ZOLEDRONIC ACID
     Dates: start: 20170718, end: 20170718
  9. IMIDAZYL [Concomitant]
     Dates: start: 20170508
  10. MICARDIS [Concomitant]
     Active Substance: TELMISARTAN
     Dates: start: 20170529, end: 20170716
  11. FUROSEMIDE [Concomitant]
     Active Substance: FUROSEMIDE
     Dates: start: 20170525, end: 20170716
  12. KEFIBIOS [Concomitant]

REACTIONS (1)
  - Alopecia [Recovered/Resolved]

NARRATIVE: CASE EVENT DATE: 20170717
